FAERS Safety Report 13210354 (Version 1)
Quarter: 2017Q1

REPORT INFORMATION
  Report Type: Spontaneous
  Country: GB (occurrence: GB)
  Receive Date: 20170210
  Receipt Date: 20170210
  Transmission Date: 20170428
  Serious: Yes (Other)
  Sender: FDA-Public Use
  Company Number: GB-TEVA-736976ACC

PATIENT
  Sex: Female

DRUGS (1)
  1. BOLAMYN [Suspect]
     Active Substance: METFORMIN HYDROCHLORIDE
     Route: 048
     Dates: start: 201609

REACTIONS (1)
  - Nephrolithiasis [Unknown]
